FAERS Safety Report 20816875 (Version 1)
Quarter: 2022Q2

REPORT INFORMATION
  Report Type: Spontaneous
  Country: FR (occurrence: FR)
  Receive Date: 20220512
  Receipt Date: 20220512
  Transmission Date: 20220721
  Serious: Yes (Other)
  Sender: FDA-Public Use
  Company Number: FR-MACLEODS PHARMACEUTICALS US LTD-MAC2022035508

PATIENT

DRUGS (2)
  1. LIDOCAINE [Suspect]
     Active Substance: LIDOCAINE
     Indication: Local anaesthesia
     Dosage: 40 MILLIGRAM, SINGLE (INJECTION)
     Route: 050
  2. ROPIVACAINE [Suspect]
     Active Substance: ROPIVACAINE
     Indication: Local anaesthesia
     Dosage: 60 MILLIGRAM, SINGLE (INJECTION)
     Route: 050

REACTIONS (2)
  - Seizure [Recovered/Resolved]
  - Local anaesthetic systemic toxicity [Unknown]
